FAERS Safety Report 12835891 (Version 1)
Quarter: 2016Q4

REPORT INFORMATION
  Report Type: Spontaneous
  Country: AU (occurrence: AU)
  Receive Date: 20161011
  Receipt Date: 20161011
  Transmission Date: 20170207
  Serious: Yes (Disabling)
  Sender: FDA-Public Use
  Company Number: AU-SUNOVION-2016DSP000713

PATIENT
  Age: 3 Decade
  Sex: Female

DRUGS (4)
  1. LATUDA [Suspect]
     Active Substance: LURASIDONE HYDROCHLORIDE
     Route: 065
  2. BENZTROP [Concomitant]
  3. SEROQUEL [Concomitant]
     Active Substance: QUETIAPINE FUMARATE
  4. INVEGA [Concomitant]
     Active Substance: PALIPERIDONE

REACTIONS (4)
  - Sedation [Unknown]
  - Dysarthria [Unknown]
  - Abnormal behaviour [Unknown]
  - Mental impairment [Unknown]
